FAERS Safety Report 4665661-0 (Version None)
Quarter: 2005Q2

REPORT INFORMATION
  Report Type: 
  Country: None (occurrence: None)
  Receive Date: 20050518
  Receipt Date: 20050518
  Transmission Date: 20051028
  Serious: No
  Sender: FDA-Public Use
  Company Number: None

PATIENT
  Sex: Male

DRUGS (6)
  1. COUMADIN [Suspect]
     Indication: ATRIAL FIBRILLATION
     Dosage: 5MG  AS DIRECTED ORAL
     Route: 048
  2. COUMADIN [Suspect]
     Indication: CAROTID ARTERY DISEASE
     Dosage: 5MG  AS DIRECTED ORAL
     Route: 048
  3. COUMADIN [Suspect]
     Indication: CEREBROVASCULAR ACCIDENT
     Dosage: 5MG  AS DIRECTED ORAL
     Route: 048
  4. COUMADIN [Suspect]
     Indication: CORONARY ARTERY DISEASE
     Dosage: 5MG  AS DIRECTED ORAL
     Route: 048
  5. COUMADIN [Suspect]
     Indication: DIABETES MELLITUS
     Dosage: 5MG  AS DIRECTED ORAL
     Route: 048
  6. COUMADIN [Suspect]
     Indication: HYPERTENSION
     Dosage: 5MG  AS DIRECTED ORAL
     Route: 048

REACTIONS (4)
  - ATRIAL FIBRILLATION [None]
  - CAROTID ARTERY STENOSIS [None]
  - CORONARY ARTERY SURGERY [None]
  - POST PROCEDURAL COMPLICATION [None]
